FAERS Safety Report 5929894-5 (Version None)
Quarter: 2008Q3

REPORT INFORMATION
  Report Type: 
  Country: None (occurrence: None)
  Receive Date: 20080930
  Receipt Date: 20080612
  Transmission Date: 20090109
  Serious: Yes (Hospitalization)
  Sender: FDA-Public Use
  Company Number: 173014USA

PATIENT
  Age: 10 Year
  Sex: Female
  Weight: 34.0198 kg

DRUGS (3)
  1. SERTRALINE HYDROCHLORIDE [Suspect]
     Indication: DEPRESSION
     Dosage: 50 MG (50 MG,1 IN 1 D),ORAL
     Route: 047
     Dates: start: 20080530, end: 20080611
  2. RISPERIDONE [Suspect]
     Indication: AGGRESSION
     Dosage: 0.5 MG (0.5 MG,1 IN 1 D),ORAL
     Route: 048
     Dates: start: 20080530, end: 20080612
  3. RISPERIDONE [Suspect]
     Indication: ANXIETY
     Dosage: 0.5 MG (0.5 MG,1 IN 1 D),ORAL
     Route: 048
     Dates: start: 20080530, end: 20080612

REACTIONS (6)
  - CONFUSIONAL STATE [None]
  - CONVULSION [None]
  - DYSKINESIA [None]
  - HALLUCINATION [None]
  - MUSCLE TWITCHING [None]
  - PYREXIA [None]
